FAERS Safety Report 15904393 (Version 1)
Quarter: 2019Q1

REPORT INFORMATION
  Report Type: Spontaneous
  Country: US (occurrence: US)
  Receive Date: 20190204
  Receipt Date: 20190204
  Transmission Date: 20190417
  Serious: No
  Sender: FDA-Public Use
  Company Number: US-AMGEN-USASP2019016420

PATIENT
  Age: 17 Year
  Sex: Male
  Weight: 74.38 kg

DRUGS (1)
  1. ENBREL [Suspect]
     Active Substance: ETANERCEPT
     Indication: OSTEOMYELITIS CHRONIC
     Dosage: 50 MG, QWK
     Route: 065
     Dates: start: 20130627

REACTIONS (1)
  - Off label use [Unknown]
